FAERS Safety Report 22147993 (Version 1)
Quarter: 2023Q1

REPORT INFORMATION
  Report Type: Spontaneous
  Country: ES (occurrence: ES)
  Receive Date: 20230328
  Receipt Date: 20230328
  Transmission Date: 20230418
  Serious: Yes (Death, Hospitalization, Other)
  Sender: FDA-Public Use
  Company Number: ES-BRISTOL-MYERS SQUIBB COMPANY-2022-065705

PATIENT
  Age: 55 Year
  Sex: Female
  Weight: 78 kg

DRUGS (15)
  1. AZACITIDINE [Suspect]
     Active Substance: AZACITIDINE
     Indication: Acute myeloid leukaemia
     Dosage: 134 MILLIGRAM, QD
     Route: 042
     Dates: start: 20220505
  2. AZACITIDINE [Suspect]
     Active Substance: AZACITIDINE
     Dosage: 134 MILLIGRAM, QD
     Route: 042
     Dates: start: 20220511
  3. BGB-11417 [Suspect]
     Active Substance: BGB-11417
     Indication: Acute myeloid leukaemia
     Dosage: 20 MILLIGRAM, QD
     Route: 048
     Dates: start: 20220505
  4. BGB-11417 [Suspect]
     Active Substance: BGB-11417
     Dosage: 160 MILLIGRAM, QD
     Route: 048
     Dates: start: 20220508
  5. BGB-11417 [Suspect]
     Active Substance: BGB-11417
     Dosage: 160 MILLIGRAM, QW (160 MILLIGRAM, QD)
     Route: 048
     Dates: start: 20220514
  6. ALLOPURINOL [Concomitant]
     Active Substance: ALLOPURINOL
     Indication: Blood uric acid increased
     Dosage: AMP IM
     Route: 048
     Dates: start: 20220330, end: 20220608
  7. ALLOPURINOL [Concomitant]
     Active Substance: ALLOPURINOL
     Indication: Dyslipidaemia
  8. Amoxicilin cu acid clavulanic rap [Concomitant]
     Indication: Febrile neutropenia
     Dosage: UNK
     Route: 065
     Dates: start: 20220601, end: 20220605
  9. SIMVASTATIN [Concomitant]
     Active Substance: SIMVASTATIN
     Indication: Dyslipidaemia
     Dosage: AMP IM
     Route: 048
     Dates: start: 20211206, end: 20220608
  10. SULFAMETHOXAZOLE\TRIMETHOPRIM [Concomitant]
     Active Substance: SULFAMETHOXAZOLE\TRIMETHOPRIM
     Indication: Infection prophylaxis
     Dosage: AMP IM
     Route: 048
     Dates: start: 20220330, end: 20220608
  11. FAMOTIDINE [Concomitant]
     Active Substance: FAMOTIDINE
     Indication: Oedema peripheral
     Dosage: AMP IM
     Route: 048
     Dates: start: 20220330, end: 20220608
  12. FAMOTIDINE [Concomitant]
     Active Substance: FAMOTIDINE
     Indication: Gastritis prophylaxis
  13. ACYCLOVIR [Concomitant]
     Active Substance: ACYCLOVIR
     Indication: Infection prophylaxis
     Dosage: AMP IM
     Route: 048
     Dates: start: 20220330, end: 20220608
  14. COTRIMOXAZOLE [Concomitant]
     Active Substance: SULFAMETHOXAZOLE\TRIMETHOPRIM
     Indication: Prophylaxis
     Dosage: AMP IM
     Route: 048
     Dates: start: 20220330, end: 20220605
  15. COTRIMOXAZOLE [Concomitant]
     Active Substance: SULFAMETHOXAZOLE\TRIMETHOPRIM
     Indication: Infection prophylaxis
     Dosage: AMP IM
     Route: 048
     Dates: start: 20220518, end: 20220605

REACTIONS (1)
  - Acute myeloid leukaemia [Fatal]
